FAERS Safety Report 7720721-2 (Version None)
Quarter: 2011Q3

REPORT INFORMATION
  Report Type: 
  Country: None (occurrence: None)
  Receive Date: 20110831
  Receipt Date: 20110817
  Transmission Date: 20111222
  Serious: No
  Sender: FDA-Public Use
  Company Number: BR-TYCO HEALTHCARE/MALLINCKRODT-T201101549

PATIENT
  Age: 53 Year
  Sex: Female

DRUGS (2)
  1. SIBUTRAMINE HYDROCHLORIDE MONOHYDRATE [Suspect]
     Indication: WEIGHT DECREASED
  2. EXALGO [Suspect]
     Indication: ANALGESIC THERAPY
     Dosage: 8 MG, QD
     Route: 048
     Dates: start: 20110701, end: 20110701

REACTIONS (1)
  - HYPERSENSITIVITY [None]
